FAERS Safety Report 8874393 (Version 5)
Quarter: 2013Q3

REPORT INFORMATION
  Report Type: Report from Study
  Country: IT (occurrence: IT)
  Receive Date: 20121030
  Receipt Date: 20130802
  Transmission Date: 20140515
  Serious: Yes (Death)
  Sender: FDA-Public Use
  Company Number: IT-CELGENEUS-083-21880-11112936

PATIENT
  Age: 75 Year
  Sex: Male

DRUGS (5)
  1. REVLIMID [Suspect]
     Indication: 5Q MINUS SYNDROME
     Dosage: 10 MILLIGRAM
     Route: 048
     Dates: start: 20090226, end: 20090312
  2. LEVOXACIN [Concomitant]
     Indication: NEUTROPENIA
     Route: 065
     Dates: start: 20090217
  3. G-CSF [Concomitant]
     Indication: NEUTROPENIA
     Route: 065
     Dates: start: 20090217
  4. FOLINA [Concomitant]
     Indication: HAEMOLYSIS
     Route: 065
     Dates: start: 20090217
  5. TENSADIUR [Concomitant]
     Indication: HYPERTENSION
     Dosage: .5 CAPSULE
     Route: 065

REACTIONS (2)
  - Autoimmune haemolytic anaemia [Fatal]
  - Myelodysplastic syndrome [Unknown]
